FAERS Safety Report 8615708-1 (Version None)
Quarter: 2012Q3

REPORT INFORMATION
  Report Type: 
  Country: None (occurrence: None)
  Receive Date: 20120823
  Receipt Date: 20120816
  Transmission Date: 20120928
  Serious: Yes (Death)
  Sender: FDA-Public Use
  Company Number: BR-ELI_LILLY_AND_COMPANY-BR201207005357

PATIENT
  Sex: Female
  Weight: 72 kg

DRUGS (2)
  1. MORPHINE [Concomitant]
     Indication: PAIN
     Dosage: UNK, UNKNOWN
     Route: 065
  2. FORTEO [Suspect]
     Indication: OSTEOPOROSIS
     Dosage: UNK, UNKNOWN
     Route: 065
     Dates: start: 20120101

REACTIONS (4)
  - CARDIAC FAILURE [None]
  - SPINAL PAIN [None]
  - RESPIRATORY FAILURE [None]
  - ADVERSE EVENT [None]
